FAERS Safety Report 6749684-3 (Version None)
Quarter: 2010Q2

REPORT INFORMATION
  Report Type: 
  Country: None (occurrence: None)
  Receive Date: 20100601
  Receipt Date: 20100528
  Transmission Date: 20101027
  Serious: Yes (Other)
  Sender: FDA-Public Use
  Company Number: D0067758A

PATIENT

DRUGS (6)
  1. REQUIP [Suspect]
     Dosage: 8MG THREE TIMES PER DAY
     Route: 048
  2. MADOPAR [Suspect]
     Dosage: 125MG PER DAY
     Route: 048
  3. STALEVO 100 [Suspect]
     Dosage: 356.25MG FIVE TIMES PER DAY
     Route: 048
  4. AMANTADINE HCL [Suspect]
     Dosage: 100MG TWICE PER DAY
     Route: 048
  5. CARBIDOPA AND LEVODOPA [Suspect]
     Dosage: 125MG AT NIGHT
     Route: 048
  6. PK-MERZ [Concomitant]
     Route: 048

REACTIONS (4)
  - HALLUCINATION [None]
  - IMMOBILE [None]
  - SENSATION OF HEAVINESS [None]
  - SENSORY LOSS [None]
